FAERS Safety Report 6582792-9 (Version None)
Quarter: 2010Q1

REPORT INFORMATION
  Report Type: 
  Country: None (occurrence: None)
  Receive Date: 20100216
  Receipt Date: 20100203
  Transmission Date: 20100710
  Serious: Yes (Hospitalization, Other)
  Sender: FDA-Public Use
  Company Number: DE-PFIZER INC-2008155164

PATIENT
  Age: 57 Year
  Sex: Male
  Weight: 85 kg

DRUGS (3)
  1. AMLODIPINE [Suspect]
     Indication: HYPERTENSION
     Dosage: 5 MG, 1X/DAY
     Route: 048
     Dates: start: 20050101
  2. ENABETA [Suspect]
     Indication: HYPERTENSION
     Dosage: 10 MG, 1X/DAY
     Route: 048
     Dates: start: 20080601
  3. ENALAPRIL MALEATE/LERCANIDIPINE HYDROCHLORIDE [Suspect]
     Dosage: 1DF/DAY=10MG LERCANIDIPINE/20MGENALAPRIL
     Dates: start: 20080601, end: 20080708

REACTIONS (1)
  - ARRHYTHMIA [None]
